FAERS Safety Report 8591955-2 (Version None)
Quarter: 2012Q3

REPORT INFORMATION
  Report Type: 
  Country: None (occurrence: None)
  Receive Date: 20120803
  Receipt Date: 20120803
  Transmission Date: 20120928
  Serious: Yes (Other)
  Sender: FDA-Public Use
  Company Number: None

PATIENT

DRUGS (1)
  1. LISINOPRIL [Suspect]
     Indication: HYPERTENSION
     Dosage: 20-12.5MG TWICE A DAY PO
     Route: 048
     Dates: start: 20120731, end: 20120801

REACTIONS (5)
  - ABDOMINAL DISCOMFORT [None]
  - SOMNOLENCE [None]
  - DIZZINESS [None]
  - HYPERHIDROSIS [None]
  - SINUSITIS [None]
